FAERS Safety Report 8234882-2 (Version None)
Quarter: 2012Q1

REPORT INFORMATION
  Report Type: 
  Country: None (occurrence: None)
  Receive Date: 20120326
  Receipt Date: 20120319
  Transmission Date: 20120608
  Serious: Yes (Other)
  Sender: FDA-Public Use
  Company Number: US-ABBOTT-12P-163-0916912-00

PATIENT
  Sex: Male
  Weight: 90.8 kg

DRUGS (4)
  1. URSO 250 [Concomitant]
     Indication: HEPATIC STEATOSIS
  2. SULFADIAZINE [Suspect]
     Indication: STAPHYLOCOCCAL INFECTION
     Dates: start: 20111201, end: 20111201
  3. HUMIRA [Suspect]
     Indication: PSORIATIC ARTHROPATHY
     Dates: start: 20070101, end: 20111201
  4. OXAPROZIN [Concomitant]
     Indication: ARTHRALGIA

REACTIONS (14)
  - CHILLS [None]
  - PYREXIA [None]
  - STAPHYLOCOCCAL INFECTION [None]
  - HEADACHE [None]
  - VOMITING [None]
  - HYPERSOMNIA [None]
  - BEDRIDDEN [None]
  - EPIPLOIC APPENDAGITIS [None]
  - PAIN [None]
  - ABDOMINAL PAIN [None]
  - INFLUENZA LIKE ILLNESS [None]
  - GLUCOSE TOLERANCE IMPAIRED [None]
  - FURUNCLE [None]
  - IMPAIRED HEALING [None]
